FAERS Safety Report 10162306 (Version 1)
Quarter: 2014Q2

REPORT INFORMATION
  Report Type: Spontaneous
  Country: IT (occurrence: None)
  Receive Date: 20140507
  Receipt Date: 20140507
  Transmission Date: 20141212
  Serious: Yes (Death)
  Sender: FDA-Public Use
  Company Number: FK201401610

PATIENT
  Age: 50 Year
  Sex: Male

DRUGS (3)
  1. IRINOTECAN [Suspect]
     Indication: PRODUCT USED FOR UNKNOWN INDICATION
     Dosage: CYCLICAL
     Route: 042
     Dates: start: 20140402, end: 20140402
  2. ERBITUX [Suspect]
     Indication: COLON CANCER METASTATIC
     Dosage: CYCLICAL
     Route: 042
     Dates: start: 20140402, end: 20140402
  3. FLUOROURACIL [Suspect]
     Indication: PRODUCT USED FOR UNKNOWN INDICATION
     Dosage: CYCLICAL
     Dates: start: 20140402, end: 20140402

REACTIONS (1)
  - Hypovolaemic shock [None]
